FAERS Safety Report 11854531 (Version 3)
Quarter: 2016Q1

REPORT INFORMATION
  Report Type: Report from Study
  Country: US (occurrence: US)
  Receive Date: 20151221
  Receipt Date: 20160120
  Transmission Date: 20160526
  Serious: No
  Sender: FDA-Public Use
  Company Number: US-AMGEN-USASL2015134263

PATIENT
  Age: 60 Year
  Sex: Male

DRUGS (1)
  1. ENBREL [Suspect]
     Active Substance: ETANERCEPT
     Indication: PRODUCT USED FOR UNKNOWN INDICATION
     Dosage: UNK
     Route: 058
     Dates: start: 2015

REACTIONS (5)
  - Injection site extravasation [Unknown]
  - General symptom [Unknown]
  - Drug dose omission [Unknown]
  - Injection site haemorrhage [Unknown]
  - Injection site pain [Unknown]

NARRATIVE: CASE EVENT DATE: 2015
